FAERS Safety Report 19888078 (Version 1)
Quarter: 2021Q3

REPORT INFORMATION
  Report Type: Report from Study
  Country: US (occurrence: US)
  Receive Date: 20210928
  Receipt Date: 20210928
  Transmission Date: 20211014
  Serious: Yes (Other)
  Sender: FDA-Public Use
  Company Number: US-SA-2021SA181767

PATIENT
  Age: 60 Year
  Sex: Female

DRUGS (4)
  1. JARDIANCE [Concomitant]
     Active Substance: EMPAGLIFLOZIN
  2. SYMBICORT [Concomitant]
     Active Substance: BUDESONIDE\FORMOTEROL FUMARATE DIHYDRATE
  3. DUPILUMAB [Suspect]
     Active Substance: DUPILUMAB
     Indication: ASTHMA
     Dosage: 600 MG, 1X
     Route: 058
     Dates: start: 20210427, end: 20210427
  4. DUPILUMAB [Suspect]
     Active Substance: DUPILUMAB
     Indication: CHRONIC OBSTRUCTIVE PULMONARY DISEASE
     Dosage: 300 MG, QOW
     Route: 058
     Dates: start: 20210511

REACTIONS (13)
  - Diabetes mellitus [Unknown]
  - Sleep disorder [Unknown]
  - Dizziness [Unknown]
  - Dyspnoea [Recovering/Resolving]
  - Sinusitis [Unknown]
  - Weight increased [Not Recovered/Not Resolved]
  - Product storage error [Unknown]
  - Drug ineffective [Unknown]
  - Drug hypersensitivity [Recovering/Resolving]
  - Lacrimation increased [Recovering/Resolving]
  - Product use issue [Unknown]
  - Fatigue [Recovered/Resolved]
  - Product use in unapproved indication [Unknown]

NARRATIVE: CASE EVENT DATE: 2021
